FAERS Safety Report 8404288-1 (Version None)
Quarter: 2012Q2

REPORT INFORMATION
  Report Type: 
  Country: None (occurrence: None)
  Receive Date: 20120601
  Receipt Date: 20120524
  Transmission Date: 20120825
  Serious: Yes (Other)
  Sender: FDA-Public Use
  Company Number: SE-MPIJNJ-2012-02151

PATIENT

DRUGS (2)
  1. VELCADE [Suspect]
     Indication: MYELOMA RECURRENCE
     Dosage: 1.3 MG/M2, CYCLIC
     Route: 042
  2. DEXAMETHASONE [Suspect]
     Indication: MYELOMA RECURRENCE
     Dosage: 20 MG, CYCLIC

REACTIONS (1)
  - HAEMORRHAGE [None]
